FAERS Safety Report 5214046-7 (Version None)
Quarter: 2007Q1

REPORT INFORMATION
  Report Type: 
  Country: None (occurrence: None)
  Receive Date: 20070122
  Receipt Date: 20070117
  Transmission Date: 20070707
  Serious: Yes (Other)
  Sender: FDA-Public Use
  Company Number: CA-ELI_LILLY_AND_COMPANY-CA200612000853

PATIENT
  Age: 23 Year
  Sex: Female
  Weight: 55 kg

DRUGS (2)
  1. ZYPREXA [Suspect]
     Indication: TRICHOTILLOMANIA
     Dosage: 2.5 MG, EACH EVENING
     Route: 048
     Dates: start: 20060929, end: 20061106
  2. PROZAC [Suspect]
     Indication: TRICHOTILLOMANIA
     Dosage: 20 MG, DAILY (1/D)
     Route: 048
     Dates: start: 20061013, end: 20061106

REACTIONS (3)
  - IRON DEFICIENCY ANAEMIA [None]
  - NEUTROPHIL COUNT DECREASED [None]
  - WHITE BLOOD CELL COUNT DECREASED [None]
